FAERS Safety Report 11909658 (Version 1)
Quarter: 2016Q1

REPORT INFORMATION
  Report Type: Spontaneous
  Country: US (occurrence: None)
  Receive Date: 20160108
  Receipt Date: 20160108
  Transmission Date: 20160526
  Serious: Yes (Life-Threatening, Hospitalization, Other)
  Sender: FDA-Public Use
  Company Number: 002035160A

PATIENT
  Age: 68 Year
  Sex: Female

DRUGS (7)
  1. PROACTIV SOLUTION OIL FREE MOISTURE SPF 15 MOISTURIZER [Suspect]
     Active Substance: OCTINOXATE\ZINC OXIDE
     Indication: ACNE
     Route: 061
     Dates: start: 20151016, end: 201511
  2. UNDISCLOSED MEDICATIONS [Concomitant]
  3. CALCIUM SUPPLEMENTS [Concomitant]
     Active Substance: CALCIUM
  4. PROACTIV REPAIRING TREATMENT [Suspect]
     Active Substance: BENZOYL PEROXIDE
     Indication: ACNE
     Route: 061
     Dates: start: 20151016, end: 201511
  5. VITAMIN A [Concomitant]
     Active Substance: VITAMIN A
  6. PROACTIV RENEWING CLEANSER [Suspect]
     Active Substance: BENZOYL PEROXIDE
     Indication: ACNE
     Route: 061
     Dates: start: 20151016, end: 201511
  7. PROACTIV SOLUTION ADVANCED DAILY OIL CONTROL [Suspect]
     Active Substance: SALICYLIC ACID
     Indication: ACNE
     Route: 061
     Dates: start: 20151016, end: 201511

REACTIONS (3)
  - Dyspnoea [None]
  - Oxygen saturation decreased [None]
  - Drug interaction [None]

NARRATIVE: CASE EVENT DATE: 20151030
